FAERS Safety Report 7104577-7 (Version None)
Quarter: 2010Q4

REPORT INFORMATION
  Report Type: 
  Country: None (occurrence: None)
  Receive Date: 20101116
  Receipt Date: 20101111
  Transmission Date: 20110411
  Serious: No
  Sender: FDA-Public Use
  Company Number: US-BIOGENIDEC-2010BI039587

PATIENT
  Age: 57 Year
  Sex: Female

DRUGS (3)
  1. AVONEX [Suspect]
     Indication: MULTIPLE SCLEROSIS
     Route: 030
     Dates: start: 20090201
  2. AVONEX [Suspect]
     Route: 030
     Dates: start: 19990401, end: 20030101
  3. AVONEX [Suspect]
     Route: 030
     Dates: start: 20030101, end: 20051101

REACTIONS (5)
  - DYSPHAGIA [None]
  - HYPOTHYROIDISM [None]
  - OROPHARYNGEAL DISCOMFORT [None]
  - THYROID NEOPLASM [None]
  - WHITE BLOOD CELL COUNT DECREASED [None]
